FAERS Safety Report 14191359 (Version 1)
Quarter: 2017Q4

REPORT INFORMATION
  Report Type: Report from Study
  Country: US (occurrence: US)
  Receive Date: 20171115
  Receipt Date: 20171115
  Transmission Date: 20180321
  Serious: Yes (Other)
  Sender: FDA-Public Use
  Company Number: US-MYLANLABS-2017M1071429

PATIENT
  Age: 17 Year
  Sex: Female

DRUGS (2)
  1. ASPIRIN. [Suspect]
     Active Substance: ASPIRIN
     Indication: KAWASAKI^S DISEASE
     Route: 065
  2. WARFARIN [Suspect]
     Active Substance: WARFARIN
     Indication: KAWASAKI^S DISEASE
     Dosage: RECEIVED FOR 7.8 YEARS
     Route: 065

REACTIONS (5)
  - Pericardial effusion [Unknown]
  - Menorrhagia [Unknown]
  - Anaemia [Unknown]
  - Epistaxis [Unknown]
  - Pericardial haemorrhage [Unknown]
